FAERS Safety Report 5337289-0 (Version None)
Quarter: 2007Q2

REPORT INFORMATION
  Report Type: 
  Country: None (occurrence: None)
  Receive Date: 20070529
  Receipt Date: 20070521
  Transmission Date: 20071010
  Serious: Yes (Death, Hospitalization)
  Sender: FDA-Public Use
  Company Number: B0472623A

PATIENT
  Age: 76 Year
  Sex: Female

DRUGS (5)
  1. ROPINIROLE HCL [Suspect]
     Indication: RESTLESS LEGS SYNDROME
     Route: 048
     Dates: start: 20070411, end: 20070424
  2. AMOXICILLIN [Concomitant]
     Route: 048
     Dates: start: 20070411, end: 20070418
  3. CO-DYDRAMOL [Concomitant]
     Indication: BACK PAIN
     Route: 048
     Dates: start: 20070419
  4. FYBOGEL [Concomitant]
     Indication: CONSTIPATION
     Route: 048
     Dates: start: 20070418
  5. PREDNISOLONE [Concomitant]
     Route: 048
     Dates: start: 20070411, end: 20070416

REACTIONS (2)
  - DIARRHOEA [None]
  - INTESTINAL OBSTRUCTION [None]
